FAERS Safety Report 8375626-3 (Version None)
Quarter: 2012Q2

REPORT INFORMATION
  Report Type: 
  Country: None (occurrence: None)
  Receive Date: 20120517
  Receipt Date: 20120517
  Transmission Date: 20120825
  Serious: Yes (Hospitalization)
  Sender: FDA-Public Use
  Company Number: None

PATIENT
  Sex: Male

DRUGS (1)
  1. ADCIRCA [Suspect]
     Dosage: 40 DAILY PO
     Route: 048
     Dates: start: 20120420, end: 20120505

REACTIONS (3)
  - SWELLING FACE [None]
  - OEDEMA PERIPHERAL [None]
  - JOINT SWELLING [None]
